FAERS Safety Report 6873676-7 (Version None)
Quarter: 2010Q3

REPORT INFORMATION
  Report Type: 
  Country: None (occurrence: None)
  Receive Date: 20100723
  Receipt Date: 20090227
  Transmission Date: 20110219
  Serious: No
  Sender: FDA-Public Use
  Company Number: US-PFIZER INC-2009179785

PATIENT
  Age: 55 Year
  Sex: Male

DRUGS (3)
  1. CHANTIX [Suspect]
  2. PAXIL [Concomitant]
  3. OTHER HYPNOTICS AND SEDATIVES [Concomitant]

REACTIONS (1)
  - ABNORMAL DREAMS [None]
